FAERS Safety Report 4516893-3 (Version None)
Quarter: 2004Q4

REPORT INFORMATION
  Report Type: 
  Country: None (occurrence: None)
  Receive Date: 20041202
  Receipt Date: 20041026
  Transmission Date: 20050328
  Serious: Yes (Hospitalization)
  Sender: FDA-Public Use
  Company Number: DK-BRISTOL-MYERS SQUIBB COMPANY-12752416

PATIENT
  Age: 31 Year
  Sex: Female

DRUGS (1)
  1. DOVONEX [Suspect]
     Indication: PSORIASIS
     Dosage: ^WIDE SPREAD APPLICATION^
     Route: 061
     Dates: start: 20040801

REACTIONS (1)
  - NEPHROLITHIASIS [None]
